FAERS Safety Report 21498452 (Version 4)
Quarter: 2023Q2

REPORT INFORMATION
  Report Type: Report from Study
  Country: PH (occurrence: PH)
  Receive Date: 20221024
  Receipt Date: 20230417
  Transmission Date: 20230722
  Serious: Yes (Hospitalization, Disabling)
  Sender: FDA-Public Use
  Company Number: PH-NOVARTISPH-NVSC2022PH235591

PATIENT
  Sex: Female

DRUGS (2)
  1. ENTRESTO [Suspect]
     Active Substance: SACUBITRIL\VALSARTAN
     Indication: Product used for unknown indication
     Dosage: 50 MG
     Route: 048
  2. ENTRESTO [Suspect]
     Active Substance: SACUBITRIL\VALSARTAN
     Dosage: 100 MG, BID (AFTER BREAKFAST AND AFTER SUPPER)
     Route: 048

REACTIONS (2)
  - Cerebrovascular accident [Unknown]
  - Intellectual disability [Unknown]

NARRATIVE: CASE EVENT DATE: 20220701
